FAERS Safety Report 7352839-0 (Version None)
Quarter: 2011Q1

REPORT INFORMATION
  Report Type: 
  Country: None (occurrence: None)
  Receive Date: 20110310
  Receipt Date: 20110310
  Transmission Date: 20110831
  Serious: Yes (Other)
  Sender: FDA-Public Use
  Company Number: None

PATIENT

DRUGS (1)
  1. BUPROPION HYDROCHLORIDE [Suspect]
     Dates: start: 20110114, end: 20110228

REACTIONS (4)
  - PRODUCT SUBSTITUTION ISSUE [None]
  - HEADACHE [None]
  - DEPRESSION [None]
  - VERTIGO [None]
